FAERS Safety Report 17440811 (Version 1)
Quarter: 2020Q1

REPORT INFORMATION
  Report Type: Spontaneous
  Country: US (occurrence: US)
  Receive Date: 20200220
  Receipt Date: 20200220
  Transmission Date: 20200409
  Serious: Yes (Other)
  Sender: FDA-Public Use
  Company Number: US-HIKMA PHARMACEUTICALS USA INC.-US-H14001-20-50626

PATIENT
  Age: 17 Year
  Sex: Female

DRUGS (1)
  1. PROGESTERONE. [Suspect]
     Active Substance: PROGESTERONE
     Indication: PRODUCT USED FOR UNKNOWN INDICATION
     Dosage: ()
     Route: 015

REACTIONS (4)
  - Swollen tongue [Unknown]
  - Drug hypersensitivity [Unknown]
  - Autoimmune dermatitis [Unknown]
  - Anaphylactic reaction [Unknown]
